FAERS Safety Report 12104650 (Version 1)
Quarter: 2016Q1

REPORT INFORMATION
  Report Type: Spontaneous
  Country: BR (occurrence: BR)
  Receive Date: 20160223
  Receipt Date: 20160223
  Transmission Date: 20160526
  Serious: Yes (Disabling)
  Sender: FDA-Public Use
  Company Number: BR-ABBVIE-16K-020-1563972-00

PATIENT
  Age: 41 Year
  Sex: Female
  Weight: 80 kg

DRUGS (9)
  1. TRAMADOL. [Concomitant]
     Active Substance: TRAMADOL
     Indication: ANKYLOSING SPONDYLITIS
     Route: 048
  2. TRAMAL [Concomitant]
     Active Substance: TRAMADOL
     Dosage: ROUTE OF ADMINISTRATION: INTRAMUSCULAR AND INTRAVENOUS
     Route: 042
  3. KETOPROFEN. [Concomitant]
     Active Substance: KETOPROFEN
     Indication: PAIN
     Dosage: ROUTE OF ADMINISTRATION: INTRAMUSCULAR AND INTRAVENOUS
  4. HUMIRA [Suspect]
     Active Substance: ADALIMUMAB
     Indication: ANKYLOSING SPONDYLITIS
     Route: 058
     Dates: start: 2013, end: 201601
  5. GABAPENTIN. [Concomitant]
     Active Substance: GABAPENTIN
     Indication: FIBROMYALGIA
     Route: 048
  6. KETOPROFEN. [Concomitant]
     Active Substance: KETOPROFEN
     Indication: ARTHRITIS
     Dosage: UP TO 2 TABLETS
     Route: 048
     Dates: start: 201601
  7. TRAMAL [Concomitant]
     Active Substance: TRAMADOL
     Indication: PAIN
     Dosage: ROUTE OF ADMINISTRATION: INTRAMUSCULAR AND INTRAVENOUS
     Route: 030
  8. TRAMADOL. [Concomitant]
     Active Substance: TRAMADOL
     Indication: FIBROMYALGIA
  9. IBUPROFEN. [Concomitant]
     Active Substance: IBUPROFEN
     Indication: ARTHRITIS
     Dosage: DAILY OR EVERY 8 HOURS
     Route: 048
     Dates: start: 201601

REACTIONS (9)
  - Influenza [Not Recovered/Not Resolved]
  - Dysphonia [Not Recovered/Not Resolved]
  - Fibromyalgia [Recovering/Resolving]
  - Depression [Recovering/Resolving]
  - Abasia [Recovered/Resolved]
  - Weight decreased [Unknown]
  - Sinusitis [Recovered/Resolved]
  - Anaemia [Unknown]
  - Arthralgia [Recovering/Resolving]

NARRATIVE: CASE EVENT DATE: 2015
